FAERS Safety Report 8312486-0 (Version None)
Quarter: 2012Q2

REPORT INFORMATION
  Report Type: 
  Country: None (occurrence: None)
  Receive Date: 20120425
  Receipt Date: 20120423
  Transmission Date: 20120825
  Serious: Yes (Disabling)
  Sender: FDA-Public Use
  Company Number: DE-MERCK-1204DEU00020

PATIENT
  Age: 46 Year
  Sex: Female
  Weight: 76 kg

DRUGS (2)
  1. EMTRICITABINE AND TENOFOVIR DISOPROXIL FUMARATE [Suspect]
     Indication: ACQUIRED IMMUNODEFICIENCY SYNDROME
     Route: 048
     Dates: end: 20110101
  2. ISENTRESS [Suspect]
     Indication: ACQUIRED IMMUNODEFICIENCY SYNDROME
     Route: 048
     Dates: end: 20110101

REACTIONS (7)
  - GENITAL HERPES [None]
  - ARTHRALGIA [None]
  - PRURITUS [None]
  - MUCOSAL DRYNESS [None]
  - ALOPECIA [None]
  - TYPE III IMMUNE COMPLEX MEDIATED REACTION [None]
  - LYMPHADENOPATHY [None]
